FAERS Safety Report 22230924 (Version 1)
Quarter: 2023Q2

REPORT INFORMATION
  Report Type: Spontaneous
  Country: US (occurrence: US)
  Receive Date: 20230420
  Receipt Date: 20230420
  Transmission Date: 20230721
  Serious: Yes (Other)
  Sender: FDA-Public Use
  Company Number: US-drreddys-SPO/USA/23/0163823

PATIENT
  Age: 25 Year
  Sex: Female

DRUGS (2)
  1. ZENATANE [Suspect]
     Active Substance: ISOTRETINOIN
     Indication: Product used for unknown indication
     Dosage: RMA ISSUE DATE: 05 JANUARY 2023 09:48:22 AM AND 07 MARCH 2023 02:56:23 PM
  2. ZENATANE [Suspect]
     Active Substance: ISOTRETINOIN
     Dosage: RMA ISSUE DATE: 05 JANUARY 2023 09:48:22 AM 06 FEBRUARY 2023 02:09:47 PM AND 07 MARCH 2023 02:56:23

REACTIONS (1)
  - Depression [Unknown]
